FAERS Safety Report 17534256 (Version 1)
Quarter: 2020Q1

REPORT INFORMATION
  Report Type: Spontaneous
  Country: NL (occurrence: NL)
  Receive Date: 20200312
  Receipt Date: 20200312
  Transmission Date: 20200409
  Serious: Yes (Disabling, Other)
  Sender: FDA-Public Use
  Company Number: NL-TRIS PHARMA, INC.-20NL008872

PATIENT

DRUGS (1)
  1. LEVETIRACETAM. [Suspect]
     Active Substance: LEVETIRACETAM
     Indication: PRODUCT USED FOR UNKNOWN INDICATION
     Route: 015

REACTIONS (4)
  - Intellectual disability [Unknown]
  - Foetal exposure during pregnancy [Unknown]
  - Speech disorder [Unknown]
  - Developmental delay [Unknown]
